FAERS Safety Report 20558071 (Version 1)
Quarter: 2022Q1

REPORT INFORMATION
  Report Type: Spontaneous
  Country: US (occurrence: None)
  Receive Date: 20220307
  Receipt Date: 20220307
  Transmission Date: 20220424
  Serious: No
  Sender: FDA-Public Use
  Company Number: 2022A095229

PATIENT
  Sex: Male
  Weight: 73.9 kg

DRUGS (5)
  1. SEROQUEL [Suspect]
     Active Substance: QUETIAPINE FUMARATE
     Indication: Bipolar disorder
     Route: 048
     Dates: start: 2020
  2. DULOXETINE [Concomitant]
     Active Substance: DULOXETINE
  3. LAMOTRIGINE [Concomitant]
     Active Substance: LAMOTRIGINE
  4. PRAZOSIN [Concomitant]
     Active Substance: PRAZOSIN
  5. NALTREXONE [Concomitant]
     Active Substance: NALTREXONE

REACTIONS (1)
  - Temperature intolerance [Unknown]
